FAERS Safety Report 11229395 (Version 1)
Quarter: 2015Q2

REPORT INFORMATION
  Report Type: Spontaneous
  Country: BR (occurrence: BR)
  Receive Date: 20150630
  Receipt Date: 20150630
  Transmission Date: 20150821
  Serious: Yes (Hospitalization, Other)
  Sender: FDA-Public Use
  Company Number: BR-ELI_LILLY_AND_COMPANY-BR201506009823

PATIENT
  Age: 41 Year
  Sex: Female

DRUGS (3)
  1. WARFARIN [Interacting]
     Active Substance: WARFARIN
     Indication: PRODUCT USED FOR UNKNOWN INDICATION
     Route: 048
  2. DOCETAXEL. [Suspect]
     Active Substance: DOCETAXEL
     Indication: CHEMOTHERAPY
     Route: 065
  3. GEMCITABINE HYDROCHLORIDE. [Interacting]
     Active Substance: GEMCITABINE HYDROCHLORIDE
     Indication: CHEMOTHERAPY
     Route: 065

REACTIONS (6)
  - Haematoma [Recovered/Resolved]
  - Blood creatinine increased [Recovered/Resolved]
  - International normalised ratio increased [Recovered/Resolved]
  - Platelet count decreased [Recovered/Resolved]
  - Leukocytosis [Recovered/Resolved]
  - Drug interaction [Unknown]
